FAERS Safety Report 21048872 (Version 2)
Quarter: 2022Q3

REPORT INFORMATION
  Report Type: Report from Study
  Country: CO (occurrence: CO)
  Receive Date: 20220706
  Receipt Date: 20220801
  Transmission Date: 20221027
  Serious: Yes (Hospitalization)
  Sender: FDA-Public Use
  Company Number: CO-BAYER-2022A088300

PATIENT
  Age: 47 Year
  Sex: Male

DRUGS (1)
  1. VENTAVIS [Suspect]
     Active Substance: ILOPROST
     Indication: Pulmonary arterial hypertension
     Dosage: 1 DF, EVERY 4 HOURS
     Route: 065
     Dates: start: 20170421

REACTIONS (1)
  - Abdominal pain upper [Not Recovered/Not Resolved]
